FAERS Safety Report 6996637-6 (Version None)
Quarter: 2010Q3

REPORT INFORMATION
  Report Type: 
  Country: None (occurrence: None)
  Receive Date: 20100918
  Receipt Date: 20090602
  Transmission Date: 20110219
  Serious: No
  Sender: FDA-Public Use
  Company Number: US-WYE-H09583209

PATIENT
  Sex: Female
  Weight: 61.29 kg

DRUGS (5)
  1. PREMPHASE 14/14 [Suspect]
     Indication: MENOPAUSAL SYMPTOMS
     Dosage: 0.625 MG (FREQUENCY UNSPECIFIED)
     Route: 048
     Dates: start: 20030101
  2. ACTONEL [Concomitant]
  3. FLONASE [Concomitant]
  4. ZYRTEC [Concomitant]
  5. ADVAIR DISKUS 100/50 [Concomitant]

REACTIONS (1)
  - COELIAC DISEASE [None]
